FAERS Safety Report 8156442-4 (Version None)
Quarter: 2012Q1

REPORT INFORMATION
  Report Type: 
  Country: None (occurrence: None)
  Receive Date: 20120221
  Receipt Date: 20120221
  Transmission Date: 20120608
  Serious: Yes (Other)
  Sender: FDA-Public Use
  Company Number: None

PATIENT
  Sex: Male

DRUGS (1)
  1. EPZICOM [Suspect]
     Dosage: 1 TAB DAILY PO
     Route: 048
     Dates: start: 20111214, end: 20120215

REACTIONS (1)
  - ARRHYTHMIA [None]
